FAERS Safety Report 18748963 (Version 2)
Quarter: 2021Q1

REPORT INFORMATION
  Report Type: Report from Study
  Country: GR (occurrence: GR)
  Receive Date: 20210115
  Receipt Date: 20210219
  Transmission Date: 20210419
  Serious: Yes (Hospitalization, Other)
  Sender: FDA-Public Use
  Company Number: GR-REGENERON PHARMACEUTICALS, INC.-2021-12004

PATIENT

DRUGS (23)
  1. CARBOPLATIN. [Suspect]
     Active Substance: CARBOPLATIN
     Indication: LUNG ADENOCARCINOMA STAGE IV
     Dosage: AUC OF 5 OR 6 MG/ML/MIN, DAY 1 EVERY 21 DAYS FOR 4 TO 6 CYCLES
     Route: 042
     Dates: start: 20200430, end: 20200702
  2. MIFLONIDE [Concomitant]
     Active Substance: BUDESONIDE
     Indication: CHRONIC OBSTRUCTIVE PULMONARY DISEASE
     Dosage: 400 ?G, BID
     Route: 045
     Dates: start: 20200813
  3. LOSEC [Concomitant]
     Active Substance: OMEPRAZOLE
     Indication: GASTRITIS PROPHYLAXIS
     Dosage: 20 MG, QD
     Route: 048
     Dates: start: 20200922
  4. PEMETREXED. [Suspect]
     Active Substance: PEMETREXED
     Indication: LUNG ADENOCARCINOMA STAGE IV
     Dosage: 500 MG/M2, DAY 1 EVERY 21 DAYS FOR 4 TO 6 CYCLES
     Route: 042
     Dates: start: 20200430, end: 20201215
  5. ABSEAMED [Concomitant]
     Active Substance: ERYTHROPOIETIN
     Indication: ANAEMIA
     Dosage: 40000 IU, QWK
     Route: 058
     Dates: start: 20201013, end: 20210108
  6. ATARAX [Concomitant]
     Active Substance: HYDROXYZINE HYDROCHLORIDE
     Indication: PRURITUS
     Dosage: 25 MG, QD
     Route: 048
     Dates: start: 20201215, end: 20210104
  7. ZIRTEK [Concomitant]
     Active Substance: CETIRIZINE HYDROCHLORIDE
     Indication: PRURITUS
     Dosage: 10 MG, QD
     Route: 048
     Dates: start: 20201208, end: 20210104
  8. FRAXIPARIN [Concomitant]
     Active Substance: NADROPARIN CALCIUM
     Indication: ATRIAL FIBRILLATION
     Dosage: 1 VIAL, QD
     Route: 058
     Dates: start: 20200904
  9. PREZOLON [Concomitant]
     Active Substance: PREDNISOLONE
     Dosage: 10 MG, QD
     Route: 048
     Dates: start: 20201216, end: 20201219
  10. PREZOLON [Concomitant]
     Active Substance: PREDNISOLONE
     Dosage: 5 MG, QD
     Route: 048
     Dates: start: 20201220, end: 20201222
  11. DEPON [Concomitant]
     Active Substance: ACETAMINOPHEN
     Indication: PROPHYLAXIS
     Dosage: 2 TABLET, QD
     Route: 048
     Dates: start: 20201216, end: 20201222
  12. CEMIPLIMAB [Suspect]
     Active Substance: CEMIPLIMAB
     Indication: LUNG ADENOCARCINOMA STAGE IV
     Dosage: 350 MG, Q3W
     Route: 042
     Dates: start: 20200430, end: 20201215
  13. FERO?FOLIC [Concomitant]
     Indication: ANAEMIA PROPHYLAXIS
     Dosage: 325+350 MG, QD
     Route: 048
     Dates: start: 20200414, end: 20210115
  14. GLUCOPHAGE [Concomitant]
     Active Substance: METFORMIN HYDROCHLORIDE
     Indication: TYPE 2 DIABETES MELLITUS
     Dosage: 850 MG, QD
     Route: 048
     Dates: start: 20200702
  15. UNIMAZOLE [Concomitant]
     Indication: HYPERTHYROIDISM
     Dosage: 5 MG, 5 DAYS OUT OF 7 OF THE WEEK
     Route: 048
     Dates: start: 20200828
  16. ARTICLOX [Concomitant]
     Indication: ANAEMIA PROPHYLAXIS
     Dosage: 1 MG, OTO
     Route: 030
     Dates: start: 20201215, end: 20201215
  17. PREZOLON [Concomitant]
     Active Substance: PREDNISOLONE
     Indication: PRURITUS
     Dosage: 20 MG, QD
     Route: 048
     Dates: start: 20201211, end: 20201215
  18. BETNOVATE [Concomitant]
     Active Substance: BETAMETHASONE
     Indication: PRURITUS
     Dosage: NONMEASURABLE MG
     Route: 061
     Dates: start: 20201211, end: 20210110
  19. SEEBRI BREEZHALER [Concomitant]
     Active Substance: GLYCOPYRROLATE
     Indication: CHRONIC OBSTRUCTIVE PULMONARY DISEASE
     Dosage: 1 PUFF, QD
     Route: 045
     Dates: start: 20200829
  20. ISOPTIN [Concomitant]
     Active Substance: VERAPAMIL HYDROCHLORIDE
     Indication: ATRIAL FIBRILLATION
     Dosage: 40 MG, TID
     Route: 048
     Dates: start: 20201130
  21. APOTEL [Concomitant]
     Active Substance: ACETAMINOPHEN
     Indication: PROPHYLAXIS
     Dosage: 1000 MG, OTO
     Route: 042
     Dates: start: 20201216, end: 20201222
  22. VESOMNI [Concomitant]
     Active Substance: SOLIFENACIN\TAMSULOSIN
     Indication: BENIGN PROSTATIC HYPERPLASIA
     Dosage: 1 TABLET, QD
     Route: 048
     Dates: start: 20201113
  23. LONQUEX [Concomitant]
     Active Substance: LIPEGFILGRASTIM
     Indication: PROPHYLAXIS
     Dosage: 6 MG, OTO
     Route: 058
     Dates: start: 20201216, end: 20201216

REACTIONS (2)
  - Alanine aminotransferase increased [Not Recovered/Not Resolved]
  - Blood bilirubin increased [Recovered/Resolved]

NARRATIVE: CASE EVENT DATE: 20210108
